FAERS Safety Report 5746859-7 (Version None)
Quarter: 2008Q2

REPORT INFORMATION
  Report Type: 
  Country: None (occurrence: None)
  Receive Date: 20080522
  Receipt Date: 20080519
  Transmission Date: 20081010
  Serious: Yes (Hospitalization)
  Sender: FDA-Public Use
  Company Number: US-GENENTECH-260206

PATIENT
  Age: 61 Year
  Sex: Female

DRUGS (5)
  1. BEVACIZUMAB [Suspect]
     Indication: NEOPLASM MALIGNANT
     Dosage: 15 MG/KG, UNK
     Route: 042
     Dates: start: 20080417
  2. CISPLATIN [Suspect]
     Indication: NEOPLASM MALIGNANT
     Dosage: 50 MG/M2, UNK
     Route: 042
     Dates: start: 20080417
  3. RADIATION THERAPY [Suspect]
     Indication: NEOPLASM MALIGNANT
  4. DECADRON [Concomitant]
     Indication: VOMITING
     Dosage: 12 MG, UNK
     Route: 042
  5. DECADRON [Concomitant]
     Dosage: 12 MG, UNK
     Route: 048

REACTIONS (2)
  - ELECTROCARDIOGRAM QT PROLONGED [None]
  - HYPONATRAEMIA [None]
